FAERS Safety Report 5383888-X (Version None)
Quarter: 2007Q3

REPORT INFORMATION
  Report Type: 
  Country: None (occurrence: None)
  Receive Date: 20070711
  Receipt Date: 20070702
  Transmission Date: 20080115
  Serious: Yes (Other)
  Sender: FDA-Public Use
  Company Number: DE-NOVOPROD-265122

PATIENT
  Sex: Male

DRUGS (2)
  1. PROTAPHANE PENFILL [Suspect]
     Indication: DRUG USE FOR UNKNOWN INDICATION
  2. NOVORAPID PENFILL [Concomitant]
     Indication: DRUG USE FOR UNKNOWN INDICATION

REACTIONS (1)
  - INJECTION SITE INFECTION [None]
